FAERS Safety Report 4891579-4 (Version None)
Quarter: 2005Q4

REPORT INFORMATION
  Report Type: 
  Country: None (occurrence: None)
  Receive Date: 20051220
  Receipt Date: 20051012
  Transmission Date: 20060501
  Serious: Yes (Other)
  Sender: FDA-Public Use
  Company Number: 421161

PATIENT
  Age: 77 Year
  Sex: Female
  Weight: 66.7 kg

DRUGS (5)
  1. BONIVA [Suspect]
     Indication: OSTEOPOROSIS
     Dosage: 150 MG 1 PER MONTH, ORAL
     Route: 048
     Dates: start: 20051010
  2. HCTZ (HYDROCHLOROTHIAZIDE) [Concomitant]
  3. PLAVIX [Concomitant]
  4. POTASSIUM (POTASSIUM NOS) [Concomitant]
  5. NEXIUM (IESOMEPRAZOLE) [Concomitant]

REACTIONS (5)
  - ARTHRALGIA [None]
  - CHEST PAIN [None]
  - CONDITION AGGRAVATED [None]
  - MUSCULOSKELETAL PAIN [None]
  - PAIN IN EXTREMITY [None]
